FAERS Safety Report 16237080 (Version 2)
Quarter: 2019Q2

REPORT INFORMATION
  Report Type: Spontaneous
  Country: US (occurrence: US)
  Receive Date: 20190425
  Receipt Date: 20190513
  Transmission Date: 20190711
  Serious: Yes (Hospitalization, Congenital Anomaly)
  Sender: FDA-Public Use
  Company Number: US-TEVA-2019-US-1041261

PATIENT
  Sex: Male

DRUGS (3)
  1. HYDROCORTISONE. [Suspect]
     Active Substance: HYDROCORTISONE
     Indication: PRODUCT USED FOR UNKNOWN INDICATION
     Route: 065
  2. NITRIC OXIDE. [Concomitant]
     Active Substance: NITRIC OXIDE
     Route: 055
  3. DOPAMINE [Concomitant]
     Active Substance: DOPAMINE\DOPAMINE HYDROCHLORIDE
     Route: 065

REACTIONS (4)
  - Hypertrophic cardiomyopathy [Recovering/Resolving]
  - Left ventricle outflow tract obstruction [Unknown]
  - Hypotension [Recovering/Resolving]
  - Sinus tachycardia [Unknown]
